FAERS Safety Report 9442459 (Version 2)
Quarter: 2014Q1

REPORT INFORMATION
  Report Type: Spontaneous
  Country: JP (occurrence: JP)
  Receive Date: 20130806
  Receipt Date: 20140119
  Transmission Date: 20141002
  Serious: Yes (Life-Threatening, Other)
  Sender: FDA-Public Use
  Company Number: JP-ASTRAZENECA-2013SE60374

PATIENT
  Age: 21 Year
  Sex: Female

DRUGS (2)
  1. DIPRIVAN [Suspect]
     Indication: SEDATION
     Dosage: 1 MG/KG/H
     Route: 042
  2. CORTISOL [Concomitant]
     Indication: SHOCK
     Dosage: (CATECHOLAMINE,CORTISOL) DOSE UNKNOWN

REACTIONS (1)
  - Propofol infusion syndrome [Unknown]
